FAERS Safety Report 20980082 (Version 1)
Quarter: 2022Q2

REPORT INFORMATION
  Report Type: Spontaneous
  Country: DE (occurrence: DE)
  Receive Date: 20220620
  Receipt Date: 20220620
  Transmission Date: 20220721
  Serious: Yes (Other)
  Sender: FDA-Public Use
  Company Number: DE-DCGMA-21193861

PATIENT
  Age: 33 Year
  Sex: Male

DRUGS (1)
  1. NPLATE [Suspect]
     Active Substance: ROMIPLOSTIM
     Indication: Product used for unknown indication
     Dosage: DAILY DOSE: 750 MUG MICROGRAM(S) EVERY WEEKS
     Route: 058

REACTIONS (1)
  - Myelofibrosis [Unknown]

NARRATIVE: CASE EVENT DATE: 20210831
